FAERS Safety Report 24247534 (Version 5)
Quarter: 2025Q1

REPORT INFORMATION
  Report Type: Spontaneous
  Country: ES (occurrence: ES)
  Receive Date: 20240826
  Receipt Date: 20250312
  Transmission Date: 20250409
  Serious: Yes (Other)
  Sender: AUROBINDO
  Company Number: ES-ELI_LILLY_AND_COMPANY-ES202404000538

PATIENT
  Age: 59 Year
  Sex: Female
  Weight: 78.5 kg

DRUGS (11)
  1. ACETAMINOPHEN [Suspect]
     Active Substance: ACETAMINOPHEN
     Indication: Headache
     Route: 065
  2. ACETAMINOPHEN [Suspect]
     Active Substance: ACETAMINOPHEN
     Indication: Nasopharyngitis
  3. ABEMACICLIB [Suspect]
     Active Substance: ABEMACICLIB
     Indication: Breast cancer
     Route: 048
  4. ABEMACICLIB [Suspect]
     Active Substance: ABEMACICLIB
     Indication: Breast cancer metastatic
     Route: 048
     Dates: start: 20240322
  5. ABEMACICLIB [Suspect]
     Active Substance: ABEMACICLIB
     Route: 048
     Dates: start: 20241218
  6. ABEMACICLIB [Suspect]
     Active Substance: ABEMACICLIB
     Dosage: 300 MILLIGRAM, ONCE A DAY
     Route: 048
     Dates: start: 20040201
  7. ABEMACICLIB [Suspect]
     Active Substance: ABEMACICLIB
     Route: 048
     Dates: start: 20241218
  8. ABEMACICLIB [Suspect]
     Active Substance: ABEMACICLIB
     Route: 048
     Dates: start: 20241218
  9. ABEMACICLIB [Suspect]
     Active Substance: ABEMACICLIB
     Route: 048
  10. ABEMACICLIB [Suspect]
     Active Substance: ABEMACICLIB
     Route: 048
  11. ABEMACICLIB [Suspect]
     Active Substance: ABEMACICLIB
     Route: 048

REACTIONS (24)
  - Renal impairment [Recovered/Resolved]
  - Blood creatinine increased [Unknown]
  - Diarrhoea [Recovering/Resolving]
  - Bone pain [Recovering/Resolving]
  - Onychalgia [Recovering/Resolving]
  - Abdominal pain upper [Recovering/Resolving]
  - Pruritus [Recovering/Resolving]
  - Fatigue [Recovering/Resolving]
  - Headache [Recovering/Resolving]
  - Nasopharyngitis [Recovering/Resolving]
  - Nausea [Recovering/Resolving]
  - Paraesthesia [Recovering/Resolving]
  - Vomiting [Recovering/Resolving]
  - Madarosis [Recovering/Resolving]
  - Dyspepsia [Recovering/Resolving]
  - Hepatic steatosis [Recovered/Resolved]
  - Weight decreased [Recovering/Resolving]
  - Renal disorder [Recovering/Resolving]
  - Pain in extremity [Recovering/Resolving]
  - Lacrimation increased [Recovering/Resolving]
  - High density lipoprotein increased [Recovering/Resolving]
  - Gastroenteritis [Recovered/Resolved]
  - Asthenia [Unknown]
  - Depressed mood [Recovering/Resolving]

NARRATIVE: CASE EVENT DATE: 20240322
